FAERS Safety Report 6608394-3 (Version None)
Quarter: 2010Q1

REPORT INFORMATION
  Report Type: 
  Country: None (occurrence: None)
  Receive Date: 20100225
  Receipt Date: 20100225
  Transmission Date: 20100710
  Serious: No
  Sender: FDA-Public Use
  Company Number: None

PATIENT
  Sex: Female
  Weight: 51.8 kg

DRUGS (4)
  1. GADOLINIUM INJECTION [Suspect]
     Indication: ADENOMYOSIS
     Dates: start: 20100127
  2. GADOLINIUM INJECTION [Suspect]
     Indication: OPTIC NEURITIS
     Dates: start: 20100127
  3. GADOLINIUM INJECTION [Suspect]
     Indication: ADENOMYOSIS
     Dates: start: 20100202
  4. GADOLINIUM INJECTION [Suspect]
     Indication: OPTIC NEURITIS
     Dates: start: 20100202

REACTIONS (6)
  - ANXIETY [None]
  - ASTHENIA [None]
  - MUSCLE SPASMS [None]
  - MUSCULOSKELETAL STIFFNESS [None]
  - NEUROMYOPATHY [None]
  - PAIN [None]
